FAERS Safety Report 7386324-7 (Version None)
Quarter: 2011Q1

REPORT INFORMATION
  Report Type: 
  Country: None (occurrence: None)
  Receive Date: 20110331
  Receipt Date: 20110318
  Transmission Date: 20110831
  Serious: Yes (Other)
  Sender: FDA-Public Use
  Company Number: PHHY2009CA19353

PATIENT
  Sex: Male

DRUGS (6)
  1. ASACOL [Concomitant]
     Dosage: 1 DF, TID
     Route: 048
  2. SYNTHROID [Concomitant]
     Dosage: 0.15 MG, UNK
     Route: 048
  3. SANDOSTATIN LAR [Suspect]
     Indication: HEPATIC NEOPLASM
     Dosage: 40 MG, EVERY 4 WEEKS
     Route: 030
     Dates: start: 20051006
  4. SANDOSTATIN LAR [Suspect]
     Dosage: 40 MG, QMO
     Route: 030
  5. PROSCAR [Concomitant]
     Dosage: 5 MG, UNK
     Route: 048
  6. CRESTOR [Concomitant]
     Dosage: 5 MG, UNK
     Route: 048

REACTIONS (5)
  - BLOOD PRESSURE SYSTOLIC INCREASED [None]
  - ARRHYTHMIA [None]
  - EXTRASYSTOLES [None]
  - ABDOMINAL MASS [None]
  - HEART RATE IRREGULAR [None]
